FAERS Safety Report 15580204 (Version 1)
Quarter: 2018Q4

REPORT INFORMATION
  Report Type: Spontaneous
  Country: US (occurrence: US)
  Receive Date: 20181101
  Receipt Date: 20181101
  Transmission Date: 20190205
  Serious: No
  Sender: FDA-Public Use
  Company Number: None

PATIENT
  Age: 65 Year
  Sex: Female
  Weight: 90.1 kg

DRUGS (1)
  1. ENOXAPARIN SODIUM INJECTION 40MG/0.4ML [Suspect]
     Active Substance: ENOXAPARIN SODIUM

REACTIONS (2)
  - Syringe issue [None]
  - Injury associated with device [None]

NARRATIVE: CASE EVENT DATE: 20181030
